FAERS Safety Report 21604634 (Version 1)
Quarter: 2022Q4

REPORT INFORMATION
  Report Type: Spontaneous
  Country: IT (occurrence: IT)
  Receive Date: 20221116
  Receipt Date: 20221116
  Transmission Date: 20230113
  Serious: Yes (Other)
  Sender: FDA-Public Use
  Company Number: None

PATIENT
  Age: 67 Year
  Sex: Female

DRUGS (3)
  1. FLUOROURACIL [Suspect]
     Active Substance: FLUOROURACIL
     Indication: Adenocarcinoma gastric
     Dosage: UNIT DOSE : 2572 MG , THERAPY END DATE : NASK
     Dates: start: 20220228
  2. FLUOROURACIL [Suspect]
     Active Substance: FLUOROURACIL
     Indication: Adenocarcinoma gastric
     Dosage: UNIT DOSE : 428 MG , THERAPY END DATE : NASK
     Dates: start: 20220228
  3. LEVO FOLINIC ACID [Concomitant]
     Indication: Adenocarcinoma gastric
     Dosage: ACIDO LEVO FOLINICO , UNIT DOSE : 214 MG
     Dates: start: 20220228

REACTIONS (17)
  - Hyperbilirubinaemia [Recovered/Resolved]
  - Syncope [Recovering/Resolving]
  - Paraesthesia [Not Recovered/Not Resolved]
  - Dry mouth [Not Recovered/Not Resolved]
  - Gait disturbance [Not Recovered/Not Resolved]
  - Amnesia [Not Recovered/Not Resolved]
  - Disorientation [Not Recovered/Not Resolved]
  - Hypertransaminasaemia [Recovered/Resolved]
  - Asthenia [Recovering/Resolving]
  - Hyperglycaemia [Not Recovered/Not Resolved]
  - Anaemia [Recovering/Resolving]
  - Fall [Not Recovered/Not Resolved]
  - Hypoalbuminaemia [Not Recovered/Not Resolved]
  - Diarrhoea [Recovering/Resolving]
  - Hyperferritinaemia [Recovered/Resolved]
  - Hypotension [Recovering/Resolving]
  - Nausea [Recovering/Resolving]

NARRATIVE: CASE EVENT DATE: 20220303
